FAERS Safety Report 16105034 (Version 1)
Quarter: 2019Q2

REPORT INFORMATION
  Report Type: Spontaneous
  Country: US (occurrence: US)
  Receive Date: 20190321
  Receipt Date: 20190321
  Transmission Date: 20190711
  Serious: Yes (Hospitalization, Disabling)
  Sender: FDA-Public Use
  Company Number: None

PATIENT
  Age: 40 Year
  Sex: Female
  Weight: 96.75 kg

DRUGS (4)
  1. CPAP PRENATAL VITAMIN [Concomitant]
  2. HYOSCAMINE 0.125 MG SUBLINGUAL [Suspect]
     Active Substance: HYOSCYAMINE
     Indication: SPHINCTER OF ODDI DYSFUNCTION
     Dosage: ?          QUANTITY:1 TABLET(S);?
     Route: 060
  3. HYOSCAMINE 0.125 MG SUBLINGUAL [Suspect]
     Active Substance: HYOSCYAMINE
     Indication: GASTROINTESTINAL PAIN
     Dosage: ?          QUANTITY:1 TABLET(S);?
     Route: 060
  4. ALBUTEROL. [Concomitant]
     Active Substance: ALBUTEROL

REACTIONS (5)
  - Product complaint [None]
  - Product taste abnormal [None]
  - Dysarthria [None]
  - Muscular weakness [None]
  - Disorientation [None]

NARRATIVE: CASE EVENT DATE: 20181230
